FAERS Safety Report 15431881 (Version 1)
Quarter: 2018Q3

REPORT INFORMATION
  Report Type: Spontaneous
  Country: FR (occurrence: FR)
  Receive Date: 20180926
  Receipt Date: 20180926
  Transmission Date: 20181010
  Serious: Yes (Death, Other)
  Sender: FDA-Public Use
  Company Number: PHHY2013FR176136

PATIENT
  Age: 71 Year
  Sex: Male
  Weight: 70 kg

DRUGS (8)
  1. ORGARAN [Concomitant]
     Active Substance: DANAPAROID SODIUM
     Indication: HEPARIN-INDUCED THROMBOCYTOPENIA
     Dosage: 250 IU, QH
     Route: 042
     Dates: start: 20130128, end: 20130201
  2. ARGATROBAN. [Suspect]
     Active Substance: ARGATROBAN
     Dosage: 1.2 UG/KG/MIN
     Route: 041
     Dates: start: 20130202, end: 20130202
  3. ARGATROBAN. [Suspect]
     Active Substance: ARGATROBAN
     Dosage: 0.5 UG/KG/MIN
     Route: 041
     Dates: start: 20130204, end: 20130204
  4. ARGATROBAN. [Suspect]
     Active Substance: ARGATROBAN
     Dosage: 0.5 UG/KG/MIN
     Route: 041
     Dates: start: 20130205, end: 20130205
  5. ARGATROBAN. [Suspect]
     Active Substance: ARGATROBAN
     Dosage: 1 UG/KG/MIN
     Route: 041
     Dates: start: 20130203, end: 20130203
  6. ARGATROBAN. [Suspect]
     Active Substance: ARGATROBAN
     Dosage: UNK
  7. ARGATROBAN. [Suspect]
     Active Substance: ARGATROBAN
     Indication: HEPARIN-INDUCED THROMBOCYTOPENIA
     Dosage: 2 UG/KG, 1 MIN
     Route: 041
     Dates: start: 20130201, end: 20130201
  8. ARGATROBAN. [Suspect]
     Active Substance: ARGATROBAN
     Dosage: 0.6 UG/KG/MIN
     Route: 041
     Dates: start: 20130203, end: 20130203

REACTIONS (2)
  - Cerebral haemorrhage [Fatal]
  - Inappropriate schedule of drug administration [Recovered/Resolved]

NARRATIVE: CASE EVENT DATE: 20130205
